FAERS Safety Report 8591467-6 (Version None)
Quarter: 2012Q3

REPORT INFORMATION
  Report Type: 
  Country: None (occurrence: None)
  Receive Date: 20120814
  Receipt Date: 20120808
  Transmission Date: 20120928
  Serious: Yes (Other)
  Sender: FDA-Public Use
  Company Number: CN-US-EMD SERONO, INC.-7153452

PATIENT
  Age: 8 Year
  Sex: Female
  Weight: 17 kg

DRUGS (1)
  1. SAIZEN [Suspect]
     Indication: GROWTH HORMONE DEFICIENCY
     Route: 058
     Dates: start: 20120604, end: 20120714

REACTIONS (1)
  - PNEUMONIA [None]
